FAERS Safety Report 21442638 (Version 1)
Quarter: 2022Q4

REPORT INFORMATION
  Report Type: Other
  Country: FI (occurrence: FI)
  Receive Date: 20221012
  Receipt Date: 20221012
  Transmission Date: 20230113
  Serious: Yes (Hospitalization, Other)
  Sender: FDA-Public Use
  Company Number: FI-DENTSPLY-2022SCDP000295

PATIENT
  Sex: Female

DRUGS (1)
  1. LIDOCAINE\PRILOCAINE [Suspect]
     Active Substance: LIDOCAINE\PRILOCAINE
     Indication: Product used for unknown indication
     Dosage: UNK EMLA
     Dates: start: 20220923, end: 20220923

REACTIONS (4)
  - Unresponsive to stimuli [Recovered/Resolved]
  - Off label use [Recovered/Resolved]
  - Cyanosis [Recovered/Resolved]
  - Methaemoglobinaemia [Recovered/Resolved]

NARRATIVE: CASE EVENT DATE: 20220923
